FAERS Safety Report 8150029-5 (Version None)
Quarter: 2012Q1

REPORT INFORMATION
  Report Type: 
  Country: None (occurrence: None)
  Receive Date: 20120219
  Receipt Date: 20120213
  Transmission Date: 20120608
  Serious: Yes (Death)
  Sender: FDA-Public Use
  Company Number: VE-CELGENEUS-178-50794-12021522

PATIENT
  Age: 56 Year
  Sex: Female

DRUGS (1)
  1. VIDAZA [Suspect]
     Dosage: 75 MILLIGRAM/SQ. METER
     Route: 065

REACTIONS (1)
  - DEATH [None]
